FAERS Safety Report 7758142-9 (Version None)
Quarter: 2011Q3

REPORT INFORMATION
  Report Type: 
  Country: None (occurrence: None)
  Receive Date: 20110919
  Receipt Date: 20110907
  Transmission Date: 20111222
  Serious: No
  Sender: FDA-Public Use
  Company Number: US-BIOGENIDEC-2011BI034285

PATIENT
  Age: 62 Year
  Sex: Female

DRUGS (3)
  1. AVONEX [Suspect]
     Indication: MULTIPLE SCLEROSIS
     Route: 030
     Dates: start: 20110727
  2. AVONEX [Suspect]
     Route: 030
     Dates: start: 20090708, end: 20110101
  3. AVONEX [Suspect]
     Route: 030
     Dates: start: 20050411, end: 20061228

REACTIONS (1)
  - SENSATION OF HEAVINESS [None]
